FAERS Safety Report 8014262-5 (Version None)
Quarter: 2011Q4

REPORT INFORMATION
  Report Type: 
  Country: None (occurrence: None)
  Receive Date: 20111229
  Receipt Date: 20111221
  Transmission Date: 20120403
  Serious: Yes (Death, Hospitalization)
  Sender: FDA-Public Use
  Company Number: US-GLAXOSMITHKLINE-B0764737A

PATIENT
  Age: 62 Year
  Sex: Male
  Weight: 109.5 kg

DRUGS (2)
  1. AVANDIA [Suspect]
     Indication: DIABETES MELLITUS
     Dosage: 2MG TWICE PER DAY
     Route: 048
     Dates: start: 20030115, end: 20061106
  2. AVANDAMET [Suspect]
     Indication: DIABETES MELLITUS
     Route: 048
     Dates: start: 20061207, end: 20091027

REACTIONS (4)
  - DIZZINESS [None]
  - CARDIAC FAILURE [None]
  - CARDIAC ARREST [None]
  - TRANSIENT ISCHAEMIC ATTACK [None]
